FAERS Safety Report 11404863 (Version 1)
Quarter: 2015Q3

REPORT INFORMATION
  Report Type: Spontaneous
  Country: US (occurrence: US)
  Receive Date: 20150821
  Receipt Date: 20150821
  Transmission Date: 20151125
  Serious: Yes (Other)
  Sender: FDA-Public Use
  Company Number: US-TEVA-588176ACC

PATIENT
  Age: 24 Year
  Sex: Female
  Weight: 89.44 kg

DRUGS (1)
  1. PARAGARD T 380A [Suspect]
     Active Substance: COPPER
     Indication: CONTRACEPTION
     Route: 015
     Dates: start: 20150707

REACTIONS (6)
  - Rash generalised [Unknown]
  - Pruritus [Unknown]
  - Device dislocation [Not Recovered/Not Resolved]
  - Allergy to metals [Not Recovered/Not Resolved]
  - Menorrhagia [Recovered/Resolved]
  - Hypersensitivity [Unknown]

NARRATIVE: CASE EVENT DATE: 201507
